FAERS Safety Report 18220522 (Version 1)
Quarter: 2020Q3

REPORT INFORMATION
  Report Type: Spontaneous
  Country: FR (occurrence: FR)
  Receive Date: 20200902
  Receipt Date: 20200902
  Transmission Date: 20201103
  Serious: Yes (Life-Threatening, Other)
  Sender: FDA-Public Use
  Company Number: FR-SUN PHARMACEUTICAL INDUSTRIES LTD-2020RR-259978

PATIENT
  Age: 24 Year
  Sex: Female
  Weight: 57 kg

DRUGS (2)
  1. PARACETAMOL [Suspect]
     Active Substance: ACETAMINOPHEN
     Indication: INTENTIONAL PRODUCT MISUSE
     Dosage: PRISE MASSIVE UNIQUE ()
     Route: 048
     Dates: start: 20200724, end: 20200724
  2. CODEINE [Suspect]
     Active Substance: CODEINE
     Indication: INTENTIONAL PRODUCT MISUSE
     Dosage: PRISE MASSIVE UNIQUE ()
     Route: 065
     Dates: start: 20200724, end: 20200724

REACTIONS (1)
  - Hepatitis fulminant [Recovering/Resolving]

NARRATIVE: CASE EVENT DATE: 20200724
